FAERS Safety Report 9438310 (Version 2)
Quarter: 2014Q1

REPORT INFORMATION
  Report Type: Spontaneous
  Country: US (occurrence: US)
  Receive Date: 20130802
  Receipt Date: 20140110
  Transmission Date: 20141002
  Serious: Yes (Death, Hospitalization)
  Sender: FDA-Public Use
  Company Number: US-B.I. PHARMACEUTICALS,INC./RIDGEFIELD-2013-BI-23052BP

PATIENT
  Age: 78 Year
  Sex: Male
  Weight: 85.28 kg

DRUGS (37)
  1. PRADAXA [Suspect]
     Indication: ATRIAL FIBRILLATION
     Dosage: 150 MG
     Route: 048
     Dates: start: 20110622
  2. ALLOPURINOL [Concomitant]
     Dosage: 150 MG
     Route: 048
  3. ALLOPURINOL [Concomitant]
     Dosage: 100 MG
     Route: 048
  4. ALLOPURINOL [Concomitant]
     Dosage: 300 MG
     Route: 048
  5. ASA [Concomitant]
     Dosage: 81 MG
     Route: 048
  6. DIGOXIN [Concomitant]
     Route: 048
     Dates: start: 2010, end: 2012
  7. FERROUS SULFATE [Concomitant]
     Dosage: 325 MG
     Route: 048
  8. FISH OIL [Concomitant]
     Dosage: 300 MG
     Route: 048
  9. FLOMAX [Concomitant]
     Dosage: 0.4 MG
     Route: 048
  10. LASIX [Concomitant]
     Dosage: 160 MG
     Route: 048
     Dates: start: 2010, end: 2012
  11. HUMALOG [Concomitant]
     Dates: start: 2010, end: 2012
  12. HYDROXYZINE HCL [Concomitant]
     Dosage: 25 MG
     Route: 048
  13. ISORDIL [Concomitant]
     Dosage: 10 MG
     Route: 048
  14. LANTUS SOLOSTAR PEN [Concomitant]
     Dosage: 75 U
     Route: 058
  15. METAMUCIL [Concomitant]
     Dosage: 5 MG
     Route: 048
  16. ZAROXOLYN [Concomitant]
     Dosage: 2.5 MG
     Route: 048
  17. MULTIVITAMIN FOR EYES [Concomitant]
     Route: 048
  18. NAFTIN [Concomitant]
     Route: 061
  19. NITROGLYCERIN [Concomitant]
     Indication: CHEST PAIN
     Route: 060
  20. OMEPRAZOLE [Concomitant]
     Dosage: 40 MG
     Route: 048
  21. PRAVACHOL [Concomitant]
     Dosage: 40 MG
     Route: 048
     Dates: start: 2010, end: 2012
  22. PROSCAR [Concomitant]
     Dosage: 5 MG
     Route: 048
     Dates: start: 2010, end: 2012
  23. SPIRONOLACTONE [Concomitant]
     Dosage: 25 MG
  24. TERAZOSIN HCL [Concomitant]
     Dosage: 5 MG
     Route: 048
     Dates: start: 2010, end: 2012
  25. TRAMADOL [Concomitant]
     Indication: PAIN
     Route: 048
  26. TRIAMCINOLONE [Concomitant]
  27. VITAMIN C [Concomitant]
     Dosage: 1000 MG
     Route: 048
  28. VITAMIN D [Concomitant]
     Dosage: 1000 U
     Route: 048
  29. TYLENOL [Concomitant]
     Route: 048
  30. COLCHICINE [Concomitant]
     Route: 048
  31. MULTIVITAMIN [Concomitant]
  32. LOPRESSOR [Concomitant]
     Dosage: 50 MG
     Route: 048
  33. MAALOX [Concomitant]
     Route: 048
  34. COLACE [Concomitant]
  35. IMODIUM [Concomitant]
     Route: 048
  36. SPIRONOLACTONE [Concomitant]
     Dosage: 25 MG
     Route: 048
  37. EPOGEN [Concomitant]
     Route: 048

REACTIONS (4)
  - Cardiac failure congestive [Fatal]
  - Renal failure chronic [Fatal]
  - Lower gastrointestinal haemorrhage [Recovered/Resolved]
  - Blood urine present [Recovered/Resolved]
